FAERS Safety Report 21220243 (Version 1)
Quarter: 2022Q3

REPORT INFORMATION
  Report Type: Spontaneous
  Country: SG (occurrence: SG)
  Receive Date: 20220817
  Receipt Date: 20220817
  Transmission Date: 20221027
  Serious: Yes (Other)
  Sender: FDA-Public Use
  Company Number: SG-BoehringerIngelheim-2022-BI-187284

PATIENT
  Age: 74 Year
  Sex: Female

DRUGS (1)
  1. TELMISARTAN [Suspect]
     Active Substance: TELMISARTAN
     Indication: Product used for unknown indication

REACTIONS (5)
  - Mucosal ulceration [Unknown]
  - Swollen tongue [Unknown]
  - Lip swelling [Unknown]
  - Dizziness [Unknown]
  - Dry throat [Unknown]

NARRATIVE: CASE EVENT DATE: 20210101
